FAERS Safety Report 5885039-1 (Version None)
Quarter: 2008Q3

REPORT INFORMATION
  Report Type: 
  Country: None (occurrence: None)
  Receive Date: 20080916
  Receipt Date: 20080909
  Transmission Date: 20090109
  Serious: Yes (Hospitalization)
  Sender: FDA-Public Use
  Company Number: FR-WYE-G02131908

PATIENT
  Age: 54 Year
  Sex: Male

DRUGS (3)
  1. RAPAMUNE [Suspect]
     Indication: KAPOSI'S SARCOMA
     Dosage: 3 MG TOTAL DAILY
     Route: 048
     Dates: start: 20080828, end: 20080904
  2. RAPAMUNE [Suspect]
     Dosage: 2 MG TOTAL DAILY
     Route: 048
     Dates: start: 20080905
  3. CELLCEPT [Suspect]
     Indication: PROPHYLAXIS AGAINST TRANSPLANT REJECTION
     Route: 048
     Dates: end: 20080910

REACTIONS (3)
  - APHTHOUS STOMATITIS [None]
  - DEHYDRATION [None]
  - DIARRHOEA [None]
